FAERS Safety Report 6096392-0 (Version None)
Quarter: 2009Q1

REPORT INFORMATION
  Report Type: 
  Country: None (occurrence: None)
  Receive Date: 20090227
  Receipt Date: 20081204
  Transmission Date: 20090719
  Serious: No
  Sender: FDA-Public Use
  Company Number: A0759074A

PATIENT
  Age: 59 Year
  Sex: Female

DRUGS (4)
  1. LAMICTAL [Suspect]
     Indication: BIPOLAR DISORDER
     Dosage: 100MG PER DAY
     Route: 048
     Dates: start: 20080601
  2. XANAX [Concomitant]
  3. LORA TAB [Concomitant]
  4. NITROGLYCERIN [Concomitant]

REACTIONS (3)
  - GASTROOESOPHAGEAL REFLUX DISEASE [None]
  - SKIN ULCER [None]
  - STAPHYLOCOCCAL INFECTION [None]
